FAERS Safety Report 7736430-X (Version None)
Quarter: 2011Q3

REPORT INFORMATION
  Report Type: 
  Country: None (occurrence: None)
  Receive Date: 20110908
  Receipt Date: 20110830
  Transmission Date: 20111222
  Serious: Yes (Other)
  Sender: FDA-Public Use
  Company Number: US-US-EMD SERONO, INC.-7060737

PATIENT
  Sex: Female

DRUGS (3)
  1. REBIF [Suspect]
     Indication: MULTIPLE SCLEROSIS
     Route: 058
     Dates: start: 20100209
  2. UNSPECIFIED MEDICATIONS [TOO MANY TO LIST] [Concomitant]
  3. PROVIGIL [Concomitant]
     Indication: MULTIPLE SCLEROSIS

REACTIONS (5)
  - LIPOMA [None]
  - BLOOD PRESSURE ABNORMAL [None]
  - MEMORY IMPAIRMENT [None]
  - INCISION SITE INFECTION [None]
  - MULTIPLE SCLEROSIS RELAPSE [None]
